FAERS Safety Report 25905127 (Version 1)
Quarter: 2025Q4

REPORT INFORMATION
  Report Type: Spontaneous
  Country: US (occurrence: US)
  Receive Date: 20251010
  Receipt Date: 20251010
  Transmission Date: 20260119
  Serious: No
  Sender: SANOFI AVENTIS
  Company Number: US-SANOFI-02673052

PATIENT
  Sex: Male

DRUGS (1)
  1. DUPIXENT [Suspect]
     Active Substance: DUPILUMAB
     Indication: Dermatitis atopic
     Dosage: 300 MG
     Dates: start: 2024, end: 202505

REACTIONS (4)
  - Staphylococcal infection [Unknown]
  - Molluscum contagiosum [Unknown]
  - Eczema [Unknown]
  - Skin papilloma [Unknown]

NARRATIVE: CASE EVENT DATE: 20250101
